FAERS Safety Report 16078268 (Version 1)
Quarter: 2019Q1

REPORT INFORMATION
  Report Type: Spontaneous
  Country: DE (occurrence: DE)
  Receive Date: 20190315
  Receipt Date: 20190315
  Transmission Date: 20190418
  Serious: Yes (Other)
  Sender: FDA-Public Use
  Company Number: PHHY2019DE030030

PATIENT
  Sex: Female

DRUGS (2)
  1. TOBI [Suspect]
     Active Substance: TOBRAMYCIN
     Indication: PSEUDOMONAS INFECTION
     Dosage: 2 DF, BID
     Route: 055
     Dates: start: 2016
  2. TOBI [Suspect]
     Active Substance: TOBRAMYCIN
     Dosage: 2 DF, BID
     Route: 055
     Dates: start: 201901

REACTIONS (1)
  - Haemoptysis [Unknown]

NARRATIVE: CASE EVENT DATE: 2016
